FAERS Safety Report 19020109 (Version 3)
Quarter: 2021Q3

REPORT INFORMATION
  Report Type: Spontaneous
  Country: US (occurrence: US)
  Receive Date: 20210317
  Receipt Date: 20210729
  Transmission Date: 20211014
  Serious: No
  Sender: FDA-Public Use
  Company Number: US-PFIZER INC-2021214577

PATIENT
  Age: 60 Year
  Sex: Male

DRUGS (3)
  1. INLYTA [Suspect]
     Active Substance: AXITINIB
     Dosage: 5 MG, 2X/DAY
     Dates: start: 20210107
  2. INLYTA [Suspect]
     Active Substance: AXITINIB
     Dosage: 7 MG, 2X/DAY
  3. INLYTA [Suspect]
     Active Substance: AXITINIB
     Dosage: 5 MG
     Dates: start: 20210111

REACTIONS (6)
  - Diarrhoea [Unknown]
  - Diet refusal [Unknown]
  - Nausea [Unknown]
  - Weight decreased [Unknown]
  - Abdominal discomfort [Unknown]
  - Cough [Unknown]
